FAERS Safety Report 6153826-0 (Version None)
Quarter: 2009Q2

REPORT INFORMATION
  Report Type: 
  Country: None (occurrence: None)
  Receive Date: 20090414
  Receipt Date: 20090401
  Transmission Date: 20091009
  Serious: Yes (Other)
  Sender: FDA-Public Use
  Company Number: GB-RANBAXY-2009RR-23252

PATIENT
  Age: 78 Year
  Sex: Male
  Weight: 53 kg

DRUGS (3)
  1. IBUPROFEN [Suspect]
     Indication: OSTEOARTHRITIS
     Dosage: 400 MG, TID
     Route: 048
     Dates: start: 20090212, end: 20090303
  2. LANSOPRAZOLE [Concomitant]
     Indication: GASTROINTESTINAL DISORDER
     Dosage: 30 MG, UNK
     Route: 048
     Dates: start: 20090212
  3. PARACETAMOL [Concomitant]
     Indication: OSTEOARTHRITIS
     Dosage: 1 G, QID
     Route: 048
     Dates: start: 20090212

REACTIONS (1)
  - GASTROINTESTINAL HAEMORRHAGE [None]
